FAERS Safety Report 11243887 (Version 1)
Quarter: 2015Q3

REPORT INFORMATION
  Report Type: Spontaneous
  Country: FR (occurrence: FR)
  Receive Date: 20150707
  Receipt Date: 20150707
  Transmission Date: 20151125
  Serious: Yes (Death, Hospitalization)
  Sender: FDA-Public Use
  Company Number: FR-PFIZER INC-2015222472

PATIENT
  Age: 70 Year
  Sex: Male

DRUGS (14)
  1. RIFAMPICIN [Concomitant]
     Active Substance: RIFAMPIN
     Indication: SEPSIS
     Dosage: UNK
     Dates: start: 20131220
  2. LINEZOLID. [Suspect]
     Active Substance: LINEZOLID
     Indication: SEPSIS
     Dosage: UNK
     Route: 042
     Dates: start: 20131211
  3. ESOMEPRAZOLE [Concomitant]
     Active Substance: ESOMEPRAZOLE
     Dosage: UNK
     Dates: start: 20131211
  4. BROMAZEPAM [Concomitant]
     Active Substance: BROMAZEPAM
     Dosage: UNK
     Dates: start: 20131211
  5. IMIPENEM [Concomitant]
     Active Substance: IMIPENEM
     Indication: KLEBSIELLA INFECTION
  6. AMIODARONE [Concomitant]
     Active Substance: AMIODARONE
     Dosage: UNK
     Dates: start: 20131211
  7. CALCIUM HEPARIN [Concomitant]
     Dosage: UNK
     Dates: start: 20131211
  8. OFLOXACIN. [Concomitant]
     Active Substance: OFLOXACIN
     Indication: SEPSIS
     Dosage: UNK
     Dates: start: 20131220
  9. NEFOPAM [Concomitant]
     Active Substance: NEFOPAM
     Dosage: UNK
     Dates: start: 20131211
  10. BISOPROLOL [Concomitant]
     Active Substance: BISOPROLOL
     Dosage: UNK
     Dates: start: 20131211
  11. ASPIRIN /00002701/ [Concomitant]
     Active Substance: ASPIRIN
     Dosage: UNK
     Dates: start: 20131211
  12. IMIPENEM [Concomitant]
     Active Substance: IMIPENEM
     Indication: ENTEROBACTER INFECTION
     Dosage: UNK
  13. FUROSEMIDE. [Concomitant]
     Active Substance: FUROSEMIDE
     Dosage: UNK
     Dates: start: 20131211
  14. PREDNISONE. [Concomitant]
     Active Substance: PREDNISONE
     Dosage: UNK
     Dates: start: 20131211

REACTIONS (1)
  - Metabolic acidosis [Fatal]
